FAERS Safety Report 5910908-3 (Version None)
Quarter: 2008Q4

REPORT INFORMATION
  Report Type: 
  Country: None (occurrence: None)
  Receive Date: 20081007
  Receipt Date: 20080703
  Transmission Date: 20090506
  Serious: No
  Sender: FDA-Public Use
  Company Number: US-ASTRAZENECA-2008UW13396

PATIENT
  Age: 74 Year
  Sex: Female
  Weight: 52.2 kg

DRUGS (13)
  1. ARIMIDEX [Suspect]
     Route: 048
     Dates: start: 20060101
  2. DIOVAN [Concomitant]
  3. LANOXIN [Concomitant]
  4. LASIX [Concomitant]
  5. FOSAMAX [Concomitant]
  6. LIPITOR [Concomitant]
  7. CATAPRES [Concomitant]
  8. PATCH CARDURA [Concomitant]
  9. COUMADIN [Concomitant]
  10. POTASSIUM CHLORIDE [Concomitant]
  11. CALCIUM [Concomitant]
  12. MULTI-VITAMIN [Concomitant]
  13. FIBERCHOICE [Concomitant]

REACTIONS (2)
  - HAIR COLOUR CHANGES [None]
  - HYPERTRICHOSIS [None]
